FAERS Safety Report 13482748 (Version 2)
Quarter: 2017Q3

REPORT INFORMATION
  Report Type: Report from Study
  Country: US (occurrence: US)
  Receive Date: 20170424
  Receipt Date: 20170728
  Transmission Date: 20171127
  Serious: No
  Sender: FDA-Public Use
  Company Number: US-AMGEN-USASL2017034971

PATIENT
  Age: 51 Year
  Sex: Male
  Weight: 83 kg

DRUGS (7)
  1. PLAVIX [Concomitant]
     Active Substance: CLOPIDOGREL BISULFATE
     Dosage: 75 MG, UNK
     Route: 048
     Dates: start: 20160721
  2. REVATIO [Concomitant]
     Active Substance: SILDENAFIL CITRATE
     Dosage: TAKE ONE 60 MINUTES BEFORE INTERCOURSE
     Route: 048
     Dates: start: 20170131
  3. METOPROLOL SUCCINATE. [Concomitant]
     Active Substance: METOPROLOL SUCCINATE
     Dosage: 50 MG, UNK
     Route: 048
     Dates: start: 20160603
  4. ASPIRIN. [Concomitant]
     Active Substance: ASPIRIN
     Dosage: 81 MG, UNK
     Route: 048
     Dates: start: 20160527
  5. CAPTOPRIL. [Concomitant]
     Active Substance: CAPTOPRIL
     Dosage: 12.5 MG, BID
     Route: 048
     Dates: start: 20170324
  6. REPATHA [Suspect]
     Active Substance: EVOLOCUMAB
     Indication: HYPERLIPIDAEMIA
  7. REPATHA [Suspect]
     Active Substance: EVOLOCUMAB
     Indication: BLOOD CHOLESTEROL INCREASED
     Dosage: 140 MG/ML, Q2WK
     Route: 058
     Dates: start: 20170226

REACTIONS (12)
  - Upper respiratory tract infection [Unknown]
  - Inguinal hernia [Unknown]
  - Erectile dysfunction [Unknown]
  - Hyperglycaemia [Unknown]
  - Tinnitus [Unknown]
  - Pain [Unknown]
  - Gastrooesophageal reflux disease [Unknown]
  - Intermittent claudication [Unknown]
  - Migraine [Unknown]
  - Paraesthesia [Unknown]
  - Diarrhoea [Unknown]
  - Palpitations [Recovered/Resolved]
